FAERS Safety Report 8934942 (Version 2)
Quarter: 2012Q4

REPORT INFORMATION
  Report Type: Report from Study
  Country: US (occurrence: US)
  Receive Date: 20121129
  Receipt Date: 20121226
  Transmission Date: 20130627
  Serious: No
  Sender: FDA-Public Use
  Company Number: US-US-EMD SERONO, INC.-7177523

PATIENT
  Sex: Male

DRUGS (3)
  1. EGRIFTA [Suspect]
     Indication: PRODUCT USED FOR UNKNOWN INDICATION
     Dates: start: 2011
  2. EGRIFTA [Suspect]
  3. ATRIPLA [Concomitant]

REACTIONS (2)
  - Hyperkeratosis [Recovered/Resolved]
  - Blood glucose increased [Recovered/Resolved]
